FAERS Safety Report 14014912 (Version 2)
Quarter: 2017Q4

REPORT INFORMATION
  Report Type: Report from Study
  Country: RU (occurrence: RU)
  Receive Date: 20170927
  Receipt Date: 20171022
  Transmission Date: 20180321
  Serious: Yes (Death)
  Sender: FDA-Public Use
  Company Number: RU-BEH-2017083917

PATIENT
  Sex: Female

DRUGS (12)
  1. CIPROFLOXACIN. [Suspect]
     Active Substance: CIPROFLOXACIN
     Indication: PNEUMONIA
  2. GENTAMYCIN                         /00047101/ [Concomitant]
     Active Substance: GENTAMICIN
  3. CEFEPIME [Concomitant]
     Active Substance: CEFEPIME HYDROCHLORIDE
  4. COTRIMOXAZOLE [Concomitant]
     Active Substance: SULFAMETHOXAZOLE\TRIMETHOPRIM
  5. FLUCONAZOLE. [Suspect]
     Active Substance: FLUCONAZOLE
  6. PRIVIGEN [Suspect]
     Active Substance: HUMAN IMMUNOGLOBULIN G
     Indication: PNEUMONIA
     Route: 042
  7. MEROPENEM. [Suspect]
     Active Substance: MEROPENEM
     Indication: PNEUMONIA
  8. BERODUAL [Concomitant]
     Active Substance: FENOTEROL HYDROBROMIDE\IPRATROPIUM BROMIDE
     Route: 055
  9. VANCOMYCIN [Suspect]
     Active Substance: VANCOMYCIN
     Indication: PNEUMONIA
  10. CEFOTAXIME [Concomitant]
     Active Substance: CEFOTAXIME SODIUM
  11. MIDECAMYCIN [Concomitant]
  12. PULMICORT TURBUHALER [Concomitant]
     Active Substance: BUDESONIDE
     Route: 055

REACTIONS (1)
  - Drug ineffective for unapproved indication [Fatal]
